FAERS Safety Report 8594888-0 (Version None)
Quarter: 2012Q3

REPORT INFORMATION
  Report Type: 
  Country: None (occurrence: None)
  Receive Date: 20120815
  Receipt Date: 20120808
  Transmission Date: 20120928
  Serious: No
  Sender: FDA-Public Use
  Company Number: US-BAYER-2012-082022

PATIENT

DRUGS (3)
  1. ALEVE (CAPLET) [Suspect]
     Indication: PRODUCT USED FOR UNKNOWN INDICATION
     Dosage: 4 DF, UNK
     Route: 048
  2. IBUPROFEN [Concomitant]
  3. ADVIL [Concomitant]

REACTIONS (2)
  - DRUG INEFFECTIVE [None]
  - ABDOMINAL PAIN UPPER [None]
